FAERS Safety Report 7995594-3 (Version None)
Quarter: 2011Q4

REPORT INFORMATION
  Report Type: 
  Country: None (occurrence: None)
  Receive Date: 20111220
  Receipt Date: 20111215
  Transmission Date: 20120403
  Serious: Yes (Hospitalization)
  Sender: FDA-Public Use
  Company Number: US-MERCK-1108USA03118

PATIENT
  Age: 66 Year
  Sex: Female
  Weight: 62 kg

DRUGS (15)
  1. PROVERA [Concomitant]
     Indication: HORMONE REPLACEMENT THERAPY
     Route: 048
  2. SYNTHROID [Concomitant]
     Indication: HYPOTHYROIDISM
     Route: 065
  3. BONIVA [Suspect]
     Indication: OSTEOPENIA
     Route: 048
     Dates: start: 20070119, end: 20091204
  4. FOSAMAX PLUS D [Suspect]
     Indication: OSTEOPENIA
     Route: 048
     Dates: start: 20060706, end: 20061201
  5. HYZAAR [Concomitant]
     Route: 065
  6. CHLOR-TRIMETON [Concomitant]
     Indication: SEASONAL ALLERGY
     Route: 048
  7. VITAMIN E [Concomitant]
     Route: 065
  8. CALCIUM (UNSPECIFIED) [Concomitant]
     Route: 065
     Dates: start: 19960101
  9. VITAMIN D (UNSPECIFIED) [Concomitant]
     Route: 065
  10. MIACALCIN [Concomitant]
     Route: 065
  11. FOSAMAX [Suspect]
     Indication: OSTEOPENIA
     Route: 048
     Dates: start: 19970909, end: 20060701
  12. ESTRACE [Concomitant]
     Indication: POSTMENOPAUSE
     Route: 048
  13. PYRIDOXINE [Concomitant]
     Route: 065
  14. ONE-A-DAY ESSENTIAL VITAMINS [Concomitant]
     Route: 065
  15. ASCORBIC ACID [Concomitant]
     Route: 065

REACTIONS (9)
  - FEMUR FRACTURE [None]
  - TACHYCARDIA [None]
  - FIBULA FRACTURE [None]
  - TENDON DISORDER [None]
  - ARTHRALGIA [None]
  - MUSCLE STRAIN [None]
  - FALL [None]
  - ELECTROCARDIOGRAM ST-T CHANGE [None]
  - WRIST FRACTURE [None]
